FAERS Safety Report 6445350-2 (Version None)
Quarter: 2009Q4

REPORT INFORMATION
  Report Type: 
  Country: None (occurrence: None)
  Receive Date: 20091110
  Receipt Date: 20090827
  Transmission Date: 20100525
  Serious: No
  Sender: FDA-Public Use
  Company Number: 1000008482

PATIENT
  Age: 41 Year
  Sex: Female

DRUGS (12)
  1. SAVELLA [Suspect]
     Dosage: 12.5 MG (12.5 MG, 1 IN 1 D), ORAL : 25 MG (12.5 MG, 2 IN 1 D), ORAL
     Route: 048
     Dates: start: 20090813, end: 20090813
  2. SAVELLA [Suspect]
     Dosage: 12.5 MG (12.5 MG, 1 IN 1 D), ORAL : 25 MG (12.5 MG, 2 IN 1 D), ORAL
     Route: 048
     Dates: start: 20090814, end: 20090815
  3. SAVELLA [Suspect]
     Indication: FIBROMYALGIA
     Dosage: 50 MG (25 MG, 2 IN 1 D), ORAL
     Route: 048
     Dates: start: 20090816, end: 20090819
  4. PIROXICAM [Concomitant]
  5. HYDROXYCHLOROQUINE SULFATE [Concomitant]
  6. WELLBUTRIN XL [Concomitant]
  7. LAMICTAL [Concomitant]
  8. TRAZODONE HCL [Concomitant]
  9. CELLCEPT [Concomitant]
  10. ORPHENADRINE CITRATE [Concomitant]
  11. NITROFUR MAC [Concomitant]
  12. VITAMINS [Concomitant]

REACTIONS (2)
  - NAUSEA [None]
  - VOMITING [None]
